FAERS Safety Report 7744190-1 (Version None)
Quarter: 2011Q3

REPORT INFORMATION
  Report Type: 
  Country: None (occurrence: None)
  Receive Date: 20110909
  Receipt Date: 20110909
  Transmission Date: 20111222
  Serious: Yes (Hospitalization)
  Sender: FDA-Public Use
  Company Number: None

PATIENT
  Age: 42 Year
  Sex: Female
  Weight: 111 kg

DRUGS (1)
  1. CIMZIA [Suspect]
     Indication: RHEUMATOID ARTHRITIS
     Dosage: CIMZIA Q 2 WEEKS SC (7.5 MG BID) MTX 12.5MG ON SUNDAY Q WEEK PO
     Route: 058
     Dates: start: 20110603

REACTIONS (8)
  - CELLULITIS [None]
  - URINARY TRACT INFECTION [None]
  - MENTAL STATUS CHANGES [None]
  - EPISTAXIS [None]
  - GINGIVAL BLEEDING [None]
  - RHABDOMYOLYSIS [None]
  - RENAL FAILURE ACUTE [None]
  - PANCYTOPENIA [None]
